FAERS Safety Report 7239294-6 (Version None)
Quarter: 2011Q1

REPORT INFORMATION
  Report Type: 
  Country: None (occurrence: None)
  Receive Date: 20110121
  Receipt Date: 20110118
  Transmission Date: 20110831
  Serious: Yes (Hospitalization)
  Sender: FDA-Public Use
  Company Number: FR-ABBOTT-10P-056-0694536-00

PATIENT
  Sex: Female
  Weight: 64 kg

DRUGS (6)
  1. DIVARIUS [Concomitant]
     Indication: DEPRESSION
     Route: 048
     Dates: start: 20060601, end: 20090901
  2. HUMIRA [Suspect]
     Indication: RHEUMATOID ARTHRITIS
     Route: 058
     Dates: start: 20030101, end: 20090901
  3. LORAZEPAM [Concomitant]
     Indication: ANXIETY
     Route: 048
     Dates: start: 20090601, end: 20090901
  4. EFFERALGAN CODEINE [Suspect]
     Indication: PRODUCT USED FOR UNKNOWN INDICATION
     Dates: end: 20090801
  5. METHOTREXATE [Suspect]
     Indication: RHEUMATOID ARTHRITIS
     Route: 048
     Dates: start: 20030101, end: 20090901
  6. PARACETAMOL [Concomitant]
     Indication: ANALGESIC THERAPY
     Route: 048

REACTIONS (11)
  - CHILLS [None]
  - HYPERHIDROSIS [None]
  - WEIGHT DECREASED [None]
  - HEPATITIS [None]
  - PYREXIA [None]
  - MOUTH ULCERATION [None]
  - HEADACHE [None]
  - ORAL HERPES [None]
  - ASTHENIA [None]
  - PANCYTOPENIA [None]
  - APHTHOUS STOMATITIS [None]
